FAERS Safety Report 10466678 (Version 1)
Quarter: 2014Q3

REPORT INFORMATION
  Report Type: Spontaneous
  Country: CA (occurrence: CA)
  Receive Date: 20140922
  Receipt Date: 20140922
  Transmission Date: 20150326
  Serious: Yes (Other)
  Sender: FDA-Public Use
  Company Number: CA-JNJFOC-20140909441

PATIENT
  Age: 67 Year
  Sex: Female

DRUGS (1)
  1. XARELTO [Suspect]
     Active Substance: RIVAROXABAN
     Indication: PRODUCT USED FOR UNKNOWN INDICATION
     Route: 048
     Dates: end: 201409

REACTIONS (6)
  - Dyspnoea [Unknown]
  - Arteriosclerosis [Unknown]
  - Haemoglobin decreased [Recovered/Resolved]
  - Haematochezia [Unknown]
  - Fatigue [Unknown]
  - Atrial fibrillation [Recovered/Resolved]
